FAERS Safety Report 9277139 (Version 1)
Quarter: 2013Q2

REPORT INFORMATION
  Report Type: Report from Study
  Country: US (occurrence: US)
  Receive Date: 20130508
  Receipt Date: 20130508
  Transmission Date: 20140414
  Serious: Yes (Hospitalization, Other)
  Sender: FDA-Public Use
  Company Number: US-MYLANLABS-2013S1008032

PATIENT
  Age: 14 Year
  Sex: Female

DRUGS (2)
  1. AMNESTEEM CAPSULES [Suspect]
     Indication: ACNE
     Route: 048
     Dates: start: 201209, end: 20130407
  2. AMNESTEEM CAPSULES [Suspect]
     Indication: SCAR
     Route: 048
     Dates: start: 201209, end: 20130407

REACTIONS (3)
  - Attention-seeking behaviour [Recovered/Resolved]
  - Negative thoughts [Recovering/Resolving]
  - Depression [Recovering/Resolving]
